FAERS Safety Report 6382754-0 (Version None)
Quarter: 2009Q3

REPORT INFORMATION
  Report Type: 
  Country: None (occurrence: None)
  Receive Date: 20090930
  Receipt Date: 20090924
  Transmission Date: 20100115
  Serious: Yes (Hospitalization)
  Sender: FDA-Public Use
  Company Number: DE-WYE-G04483309

PATIENT
  Sex: Male
  Weight: 68 kg

DRUGS (5)
  1. TORISEL [Suspect]
     Indication: METASTATIC RENAL CELL CARCINOMA
     Route: 042
     Dates: start: 20090724, end: 20090911
  2. CLEMASTINE FUMARATE [Concomitant]
     Indication: PREMEDICATION
     Dates: start: 20090724, end: 20090911
  3. PANTOPRAZOLE SODIUM [Concomitant]
     Route: 048
  4. SIOFOR [Concomitant]
     Route: 048
  5. AMARYL [Concomitant]
     Route: 048

REACTIONS (4)
  - GENERAL PHYSICAL HEALTH DETERIORATION [None]
  - HYPOPHAGIA [None]
  - NAUSEA [None]
  - WEIGHT DECREASED [None]
